FAERS Safety Report 18038568 (Version 4)
Quarter: 2020Q3

REPORT INFORMATION
  Report Type: Spontaneous
  Country: US (occurrence: US)
  Receive Date: 20200717
  Receipt Date: 20200810
  Transmission Date: 20201103
  Serious: No
  Sender: FDA-Public Use
  Company Number: US-PFIZER INC-2020272483

PATIENT
  Age: 61 Year
  Sex: Female

DRUGS (1)
  1. XELJANZ [Suspect]
     Active Substance: TOFACITINIB CITRATE
     Indication: ARTHRALGIA
     Dosage: 5 MG, TWICE A DAY
     Dates: start: 202005

REACTIONS (4)
  - Therapeutic product effect delayed [Unknown]
  - Immune system disorder [Unknown]
  - Off label use [Unknown]
  - Product use in unapproved indication [Unknown]
